FAERS Safety Report 5296720-X (Version None)
Quarter: 2007Q2

REPORT INFORMATION
  Report Type: 
  Country: None (occurrence: None)
  Receive Date: 20070413
  Receipt Date: 20070402
  Transmission Date: 20071010
  Serious: Yes (Hospitalization, Other)
  Sender: FDA-Public Use
  Company Number: US-PFIZER INC-2007026381

PATIENT
  Sex: Male
  Weight: 78.5 kg

DRUGS (7)
  1. CELEBREX [Suspect]
     Indication: PROPHYLAXIS
  2. CELEBREX [Suspect]
     Indication: ARTHRITIS
  3. ACETYLSALICYLIC ACID SRT [Concomitant]
  4. CALCIUM [Concomitant]
  5. LIPITOR [Concomitant]
  6. VITAMINS [Concomitant]
  7. MINERALS NOS [Concomitant]

REACTIONS (10)
  - ARTERY DISSECTION [None]
  - ARTHRITIS [None]
  - BACTERIAL INFECTION [None]
  - CEREBELLAR INFARCTION [None]
  - CEREBROVASCULAR ACCIDENT [None]
  - CHONDROPATHY [None]
  - INFLUENZA [None]
  - LOSS OF CONSCIOUSNESS [None]
  - NAUSEA [None]
  - WEIGHT DECREASED [None]
